FAERS Safety Report 25114814 (Version 1)
Quarter: 2025Q1

REPORT INFORMATION
  Report Type: Spontaneous
  Country: US (occurrence: US)
  Receive Date: 20250324
  Receipt Date: 20250324
  Transmission Date: 20250409
  Serious: No
  Sender: BRISTOL-MYERS SQUIBB COMPANY
  Company Number: US-BRISTOL-MYERS SQUIBB COMPANY-2025-043796

PATIENT
  Age: 26 Year
  Sex: Female

DRUGS (1)
  1. SOTYKTU [Suspect]
     Active Substance: DEUCRAVACITINIB
     Indication: Psoriasis
     Route: 048

REACTIONS (6)
  - Pigmentation disorder [Unknown]
  - Thermal burn [Unknown]
  - Pain [Unknown]
  - Pruritus [Unknown]
  - Limb mass [Unknown]
  - Acne [Unknown]
